FAERS Safety Report 6761215-0 (Version None)
Quarter: 2010Q2

REPORT INFORMATION
  Report Type: 
  Country: None (occurrence: None)
  Receive Date: 20100608
  Receipt Date: 20100528
  Transmission Date: 20101027
  Serious: Yes (Hospitalization, Other)
  Sender: FDA-Public Use
  Company Number: JP-ROCHE-694053

PATIENT
  Sex: Male
  Weight: 54 kg

DRUGS (19)
  1. XELODA [Suspect]
     Indication: RECTAL CANCER METASTATIC
     Dosage: IT IS ONE ADMINISTERING WEEKLY HOLIDAY MEDICINE FOR TWO WEEKS.
     Route: 048
     Dates: start: 20100106, end: 20100325
  2. AVASTIN [Suspect]
     Indication: RECTAL CANCER METASTATIC
     Route: 041
     Dates: start: 20080929, end: 20090216
  3. AVASTIN [Suspect]
     Route: 041
     Dates: start: 20090302, end: 20090302
  4. AVASTIN [Suspect]
     Route: 041
     Dates: start: 20100106, end: 20100310
  5. IRINOTECAN HYDROCHLORIDE [Concomitant]
     Route: 041
     Dates: start: 20080929, end: 20090216
  6. FLUOROURACIL [Concomitant]
     Route: 040
     Dates: start: 20080929, end: 20090216
  7. FLUOROURACIL [Concomitant]
     Route: 040
     Dates: start: 20080929, end: 20090201
  8. FLUOROURACIL [Concomitant]
     Route: 040
     Dates: start: 20090302, end: 20090302
  9. FLUOROURACIL [Concomitant]
     Route: 040
     Dates: start: 20090302, end: 20090301
  10. LEUCOVORIN CALCIUM [Concomitant]
     Route: 041
     Dates: start: 20080929, end: 20090216
  11. LEUCOVORIN CALCIUM [Concomitant]
     Route: 041
     Dates: start: 20090302, end: 20090302
  12. ELPLAT [Concomitant]
     Route: 041
     Dates: start: 20090302, end: 20090302
  13. BROTIZOLAM [Concomitant]
     Route: 048
     Dates: end: 20100330
  14. URIEF [Concomitant]
     Route: 048
     Dates: end: 20100325
  15. GOSHAJINKIGAN [Concomitant]
     Dosage: DOSE FORM: GRANULATED POWDER
     Route: 048
     Dates: end: 20100325
  16. JUZENTAIHOTO [Concomitant]
     Dosage: DOSE FORM: PERORAL AGENT
     Route: 048
     Dates: end: 20100325
  17. MAGMITT [Concomitant]
     Route: 048
     Dates: end: 20100325
  18. LASIX [Concomitant]
     Route: 048
     Dates: end: 20100309
  19. PYDOXAL [Concomitant]
     Route: 048
     Dates: start: 20100106, end: 20100325

REACTIONS (4)
  - ANAL FISTULA [None]
  - ILEUS [None]
  - JEJUNAL PERFORATION [None]
  - SMALL INTESTINAL PERFORATION [None]
